FAERS Safety Report 4498879-0 (Version None)
Quarter: 2004Q4

REPORT INFORMATION
  Report Type: 
  Country: None (occurrence: None)
  Receive Date: 20041108
  Receipt Date: 20041026
  Transmission Date: 20050328
  Serious: Yes (Hospitalization)
  Sender: FDA-Public Use
  Company Number: US-2004-025466

PATIENT
  Age: 46 Year
  Sex: Female

DRUGS (4)
  1. BETASERON [Suspect]
     Indication: MULTIPLE SCLEROSIS
     Dosage: 8 MIU, EVERY 2D, SUBCUTANEOUS
     Route: 058
     Dates: start: 20010429
  2. BACLOFEN [Concomitant]
  3. NEURONTIN [Concomitant]
  4. TRIVORA-21 [Concomitant]

REACTIONS (27)
  - ARTHRALGIA [None]
  - ASTHENIA [None]
  - BACTERIA URINE IDENTIFIED [None]
  - CHEST PAIN [None]
  - CONSTIPATION [None]
  - DEEP VEIN THROMBOSIS [None]
  - DYSURIA [None]
  - ESCHERICHIA URINARY TRACT INFECTION [None]
  - FALL [None]
  - GENERAL PHYSICAL HEALTH DETERIORATION [None]
  - HAEMATURIA [None]
  - HYPOAESTHESIA [None]
  - HYPOCOAGULABLE STATE [None]
  - INTERNATIONAL NORMALISED RATIO DECREASED [None]
  - INTERNATIONAL NORMALISED RATIO INCREASED [None]
  - LACTOBACILLUS INFECTION [None]
  - MUSCLE SPASMS [None]
  - NEUROPATHY [None]
  - OEDEMA PERIPHERAL [None]
  - PAIN IN EXTREMITY [None]
  - PARAESTHESIA [None]
  - PROGRESSIVE MULTIPLE SCLEROSIS [None]
  - PROTHROMBIN TIME PROLONGED [None]
  - THERAPY NON-RESPONDER [None]
  - URINARY INCONTINENCE [None]
  - VISION BLURRED [None]
  - VISUAL DISTURBANCE [None]
